FAERS Safety Report 4283125-3 (Version None)
Quarter: 2004Q1

REPORT INFORMATION
  Report Type: 
  Country: None (occurrence: None)
  Receive Date: 20040129
  Receipt Date: 20040116
  Transmission Date: 20041129
  Serious: Yes (Death, Hospitalization)
  Sender: FDA-Public Use
  Company Number: JP-JNJFOC-20031202810

PATIENT
  Age: 51 Year
  Sex: Male
  Weight: 54.8 kg

DRUGS (23)
  1. REMICADE [Suspect]
     Indication: RHEUMATOID ARTHRITIS
     Dosage: SEE IMAGE
     Route: 041
     Dates: start: 20030919, end: 20030919
  2. RHEUMATREX [Suspect]
     Indication: RHEUMATOID ARTHRITIS
     Dosage: 8 MG, IN 1 WEEK, ORAL
     Route: 048
     Dates: start: 20021104, end: 20031119
  3. METHOTREXATE [Suspect]
     Indication: RHEUMATOID ARTHRITIS
     Dosage: SEE IMAGE
     Route: 048
     Dates: start: 20000512, end: 20001104
  4. METHOTREXATE [Suspect]
     Indication: RHEUMATOID ARTHRITIS
     Dosage: SEE IMAGE
     Route: 048
     Dates: start: 20001104, end: 20011012
  5. METHOTREXATE [Suspect]
     Indication: RHEUMATOID ARTHRITIS
     Dosage: SEE IMAGE
     Route: 048
     Dates: start: 20011012, end: 20031119
  6. METALCAPTASE (PENICILLAMINE) CAPSULES [Suspect]
     Indication: RHEUMATOID ARTHRITIS
     Dosage: 200 MG, 1 IN 1 DAY, ORAL
     Route: 048
     Dates: start: 20021129
  7. VOLTAREN [Concomitant]
  8. NABOAL SR (DICLOFENAC SODIUM) [Concomitant]
  9. PREDNISOLONE [Concomitant]
  10. FOLIAMIN (FOLIC ACID) [Concomitant]
  11. ADONA (CARBAZOCHROME SODIUM SULFONATE) [Concomitant]
  12. GANATON (ITOPRIDE HYDROCHLORIDE) [Concomitant]
  13. SM POWDER (ALL OTHER THERAPEUTIC PRODUCTS) [Concomitant]
  14. SELBEX 10% (TEPRENONE) [Concomitant]
  15. MAGNESIUM OXIDE (MAGNESIUM OXIDE) [Concomitant]
  16. DAIMEDIN (VITAMEDIN CAPSULE) [Concomitant]
  17. CALFALEAD (ALL OTHER THERAPEUTIC PRODUCTS) [Concomitant]
  18. NIZATIDINE [Concomitant]
  19. INSIDE PAP (ALL OTHER THERAPEUTIC PRODUCTS) [Concomitant]
  20. PENFILL 12, 30R (INSULIN HUMAN) INJECTION [Concomitant]
  21. GASMOTIN (MOSAPRIDE CITRATE) [Concomitant]
  22. TERNELIN (TIZANIDINE HYDROCHLORIDE) [Concomitant]
  23. VITAMIN A AND D (VITAMIDYNE A AND D) [Concomitant]

REACTIONS (14)
  - BLOOD ALKALINE PHOSPHATASE INCREASED [None]
  - BLOOD GLUCOSE INCREASED [None]
  - BLOOD LACTATE DEHYDROGENASE INCREASED [None]
  - CARDIAC ARREST [None]
  - CEREBRAL HAEMORRHAGE [None]
  - CERVICAL VERTEBRA INJURY [None]
  - DECREASED APPETITE [None]
  - DEPRESSED LEVEL OF CONSCIOUSNESS [None]
  - DRUG INTERACTION [None]
  - FATIGUE [None]
  - HAEMOLYTIC ANAEMIA [None]
  - PLATELET COUNT DECREASED [None]
  - RASH VESICULAR [None]
  - WEIGHT DECREASED [None]
